FAERS Safety Report 17051406 (Version 2)
Quarter: 2020Q4

REPORT INFORMATION
  Report Type: Spontaneous
  Country: US (occurrence: US)
  Receive Date: 20191120
  Receipt Date: 20201119
  Transmission Date: 20210113
  Serious: No
  Sender: FDA-Public Use
  Company Number: US-PHARMAXIS PRODUCTION-US-PMX02-19-00015

PATIENT
  Age: 42 Year
  Sex: Male

DRUGS (1)
  1. ARIDOL [Suspect]
     Active Substance: MANNITOL
     Indication: PULMONARY FUNCTION CHALLENGE TEST
     Route: 055

REACTIONS (2)
  - Chest discomfort [Recovered/Resolved]
  - Cough [Recovered/Resolved]
